FAERS Safety Report 4485136-1 (Version None)
Quarter: 2004Q4

REPORT INFORMATION
  Report Type: 
  Country: None (occurrence: None)
  Receive Date: 20041026
  Receipt Date: 20031117
  Transmission Date: 20050328
  Serious: No
  Sender: FDA-Public Use
  Company Number: US-BRISTOL-MYERS SQUIBB COMPANY-12437703

PATIENT
  Sex: Female

DRUGS (5)
  1. GLUCOPHAGE XR [Suspect]
     Indication: DIABETES MELLITUS
     Route: 048
     Dates: start: 20030815, end: 20031115
  2. IBUPROFEN [Concomitant]
  3. HYDROCHLOROTHIAZIDE [Concomitant]
  4. VOLTAREN [Concomitant]
  5. MECLIZINE [Concomitant]

REACTIONS (3)
  - GLOSSODYNIA [None]
  - ORAL DISCOMFORT [None]
  - PARAESTHESIA ORAL [None]
